FAERS Safety Report 9131720 (Version 3)
Quarter: 2013Q2

REPORT INFORMATION
  Report Type: Spontaneous
  Country: US (occurrence: US)
  Receive Date: 20130301
  Receipt Date: 20130416
  Transmission Date: 20140414
  Serious: Yes (Hospitalization, Other)
  Sender: FDA-Public Use
  Company Number: US-JNJFOC-20130211739

PATIENT
  Age: 71 Year
  Sex: Female
  Weight: 92.08 kg

DRUGS (8)
  1. XARELTO [Suspect]
     Indication: THROMBOSIS PROPHYLAXIS
     Dosage: NDC#50458-580-10
     Route: 048
     Dates: start: 20130205, end: 20130208
  2. XARELTO [Suspect]
     Indication: KNEE ARTHROPLASTY
     Dosage: NDC#50458-580-10
     Route: 048
     Dates: start: 20130205, end: 20130208
  3. ATORVASTATIN [Suspect]
     Indication: KNEE ARTHROPLASTY
     Route: 065
     Dates: start: 20130205, end: 20130206
  4. ATORVASTATIN [Suspect]
     Indication: DYSLIPIDAEMIA
     Route: 065
     Dates: start: 20130205, end: 20130206
  5. SIMVASTATIN [Suspect]
     Indication: DYSLIPIDAEMIA
     Route: 065
  6. TYLENOL NO 3 [Concomitant]
     Indication: KNEE ARTHROPLASTY
     Route: 065
  7. TYLENOL NO 3 [Concomitant]
     Indication: KNEE ARTHROPLASTY
     Route: 065
     Dates: start: 20130206, end: 20130207
  8. DYAZIDE [Concomitant]
     Route: 065
     Dates: start: 20130205, end: 20130207

REACTIONS (7)
  - Renal failure acute [Recovered/Resolved]
  - Pneumonia [Recovering/Resolving]
  - Aspartate aminotransferase increased [Recovering/Resolving]
  - Alanine aminotransferase increased [Recovering/Resolving]
  - Blood creatinine increased [Recovering/Resolving]
  - Liver function test abnormal [Recovering/Resolving]
  - Rhabdomyolysis [Recovering/Resolving]
